FAERS Safety Report 11838435 (Version 1)
Quarter: 2015Q4

REPORT INFORMATION
  Report Type: Spontaneous
  Country: US (occurrence: US)
  Receive Date: 20151215
  Receipt Date: 20151215
  Transmission Date: 20160305
  Serious: Yes (Life-Threatening)
  Sender: FDA-Public Use
  Company Number: US-ALK ABELLO INC-1045523

PATIENT
  Age: 37 Year
  Sex: Male

DRUGS (11)
  1. LOSARTAN AND HYDROCHLOROTHIAZIDE [Concomitant]
     Active Substance: HYDROCHLOROTHIAZIDE\LOSARTAN POTASSIUM
     Route: 048
  2. BERMUDA GRASS, STANDARDIZED [Suspect]
     Active Substance: CYNODON DACTYLON POLLEN
     Route: 058
  3. MIXTURE OF STANDARDIZED MITES [Suspect]
     Active Substance: DERMATOPHAGOIDES FARINAE\DERMATOPHAGOIDES PTERONYSSINUS
     Route: 058
  4. AMERICAN COCKROACH [Suspect]
     Active Substance: PERIPLANETA AMERICANA
     Route: 058
  5. LAMBS QUARTERS [Suspect]
     Active Substance: CHENOPODIUM ALBUM POLLEN
     Route: 058
  6. MAPLE POLLEN MIXTURE [Suspect]
     Active Substance: ACER RUBRUM POLLEN\ACER SACCHARINUM POLLEN\ACER SACCHARUM POLLEN
     Route: 058
  7. ENGLISH PLANTAIN POLLEN [Suspect]
     Active Substance: PLANTAGO LANCEOLATA POLLEN
     Route: 058
  8. FLONASE [Concomitant]
     Active Substance: FLUTICASONE PROPIONATE
     Route: 045
  9. BIRCH [Suspect]
     Active Substance: BETULA NIGRA POLLEN
     Route: 058
  10. CAT HAIR [Suspect]
     Active Substance: FELIS CATUS HAIR
     Route: 058
  11. KENTUCKY BLUEGRASS (JUNE), STANDARDIZED [Suspect]
     Active Substance: POA PRATENSIS POLLEN
     Route: 058

REACTIONS (4)
  - Lip swelling [Recovered/Resolved]
  - Dyspnoea [Recovered/Resolved]
  - Flushing [Recovered/Resolved]
  - Swelling face [Recovered/Resolved]

NARRATIVE: CASE EVENT DATE: 20150421
